FAERS Safety Report 4969236-5 (Version None)
Quarter: 2006Q2

REPORT INFORMATION
  Report Type: 
  Country: None (occurrence: None)
  Receive Date: 20060405
  Receipt Date: 20060322
  Transmission Date: 20061013
  Serious: Yes (Other)
  Sender: FDA-Public Use
  Company Number: 2006040782

PATIENT
  Sex: Female
  Weight: 81.6475 kg

DRUGS (5)
  1. DIFLUCAN [Suspect]
     Indication: VULVOVAGINAL MYCOTIC INFECTION
     Dosage: ORAL
     Route: 048
  2. DECONAMINE (CHLORPHENAMINE MALEATE, PSEUDOEPHEDRINE HYDROCHLORIDE) [Concomitant]
  3. EFFEXOR [Concomitant]
  4. BRITH CONTROL PILLS (CONTRACEPTIVE, UNSPECIFIED) [Concomitant]
  5. SYNTHROID [Concomitant]

REACTIONS (3)
  - DRUG INEFFECTIVE [None]
  - THYROID NEOPLASM [None]
  - UPPER RESPIRATORY TRACT INFECTION [None]
